FAERS Safety Report 15600856 (Version 2)
Quarter: 2018Q4

REPORT INFORMATION
  Report Type: Spontaneous
  Country: US (occurrence: US)
  Receive Date: 20181109
  Receipt Date: 20181113
  Transmission Date: 20190205
  Serious: Yes (Other)
  Sender: FDA-Public Use
  Company Number: US-TEVA-2018-US-972675

PATIENT
  Age: 51 Year
  Sex: Female

DRUGS (2)
  1. DIAMOX SEQUELS [Suspect]
     Active Substance: ACETAZOLAMIDE
     Indication: EPILEPSY
     Route: 065
     Dates: start: 1993
  2. CALTRATE [Suspect]
     Active Substance: CALCIUM CARBONATE
     Route: 065

REACTIONS (2)
  - Nephrolithiasis [Unknown]
  - Seizure [Unknown]

NARRATIVE: CASE EVENT DATE: 2017
